FAERS Safety Report 22932484 (Version 2)
Quarter: 2023Q4

REPORT INFORMATION
  Report Type: Spontaneous
  Country: US (occurrence: None)
  Receive Date: 20230912
  Receipt Date: 20231026
  Transmission Date: 20240110
  Serious: No
  Sender: FDA-Public Use
  Company Number: 2023A204101

PATIENT
  Age: 25459 Day
  Sex: Male

DRUGS (2)
  1. TEZSPIRE [Suspect]
     Active Substance: TEZEPELUMAB-EKKO
     Dates: start: 20230807
  2. PAXLOVID [Concomitant]
     Active Substance: NIRMATRELVIR\RITONAVIR

REACTIONS (3)
  - COVID-19 [Unknown]
  - Illness [Unknown]
  - Immune system disorder [Unknown]

NARRATIVE: CASE EVENT DATE: 20230824
